FAERS Safety Report 11358751 (Version 1)
Quarter: 2015Q3

REPORT INFORMATION
  Report Type: Spontaneous
  Country: US (occurrence: None)
  Receive Date: 20150806
  Receipt Date: 20150806
  Transmission Date: 20151125
  Serious: No
  Sender: FDA-Public Use
  Company Number: None

PATIENT
  Age: 56 Year
  Sex: Female
  Weight: 70.31 kg

DRUGS (6)
  1. MYRBETRIQ [Concomitant]
     Active Substance: MIRABEGRON
  2. AVONEX [Concomitant]
     Active Substance: INTERFERON BETA-1A
  3. AVAPRO [Concomitant]
     Active Substance: IRBESARTAN
  4. NORCO 5 [Concomitant]
  5. COLEUS FORSKOHLII ROOT EXTRACT [Suspect]
     Active Substance: PLECTRANTHUS BARBATUS ROOT
     Indication: WEIGHT LOSS DIET
     Route: 048
     Dates: start: 20150706, end: 20150801
  6. DIAZEPAM. [Concomitant]
     Active Substance: DIAZEPAM

REACTIONS (3)
  - Abdominal pain upper [None]
  - Abdominal distension [None]
  - Chest pain [None]
